FAERS Safety Report 24800800 (Version 1)
Quarter: 2025Q1

REPORT INFORMATION
  Report Type: Spontaneous
  Country: CN (occurrence: CN)
  Receive Date: 20250102
  Receipt Date: 20250102
  Transmission Date: 20250409
  Serious: Yes (Hospitalization)
  Sender: PFIZER
  Company Number: CN-PFIZER INC-PV202400169520

PATIENT
  Age: 35 Year
  Sex: Female

DRUGS (6)
  1. LINEZOLID [Suspect]
     Active Substance: LINEZOLID
     Indication: Pulmonary tuberculosis
     Dosage: 600 MG, 1X/DAY
     Route: 048
     Dates: start: 20241023, end: 20241029
  2. CYCLOSERINE [Suspect]
     Active Substance: CYCLOSERINE
     Indication: Immunisation
     Dosage: 250 MG, 2X/DAY
     Route: 048
     Dates: start: 20241023, end: 20241222
  3. CYCLOSERINE [Suspect]
     Active Substance: CYCLOSERINE
     Indication: Tuberculosis
  4. MOXIFLOXACIN [Concomitant]
     Active Substance: MOXIFLOXACIN
     Indication: Pulmonary tuberculosis
  5. BEDAQUILINE FUMARATE [Concomitant]
     Active Substance: BEDAQUILINE FUMARATE
     Indication: Pulmonary tuberculosis
  6. PROTIONAMIDE [Concomitant]
     Active Substance: PROTIONAMIDE
     Indication: Pulmonary tuberculosis

REACTIONS (5)
  - Mental disorder [Recovering/Resolving]
  - Dysphoria [Recovering/Resolving]
  - Agitation [Recovering/Resolving]
  - Poor quality sleep [Recovering/Resolving]
  - Off label use [Unknown]

NARRATIVE: CASE EVENT DATE: 20241023
